FAERS Safety Report 14527223 (Version 5)
Quarter: 2018Q2

REPORT INFORMATION
  Report Type: Spontaneous
  Country: AT (occurrence: AT)
  Receive Date: 20180213
  Receipt Date: 20180427
  Transmission Date: 20180711
  Serious: Yes (Life-Threatening, Hospitalization)
  Sender: FDA-Public Use
  Company Number: AT-PFIZER INC-2018060738

PATIENT
  Age: 88 Year
  Sex: Female
  Weight: 60 kg

DRUGS (11)
  1. TEMESTA (LORAZEPAM) [Suspect]
     Active Substance: LORAZEPAM
     Dosage: 1 MG, UNK
     Route: 042
     Dates: start: 20171013, end: 20171013
  2. TRITTICO [Concomitant]
     Active Substance: TRAZODONE HYDROCHLORIDE
     Dosage: 100 MG, 1X/DAY
  3. TRITTICO [Concomitant]
     Active Substance: TRAZODONE HYDROCHLORIDE
     Dosage: 100 MG, UNK
     Dates: start: 20171011, end: 20171011
  4. LOVENOX [Concomitant]
     Active Substance: ENOXAPARIN SODIUM
     Dosage: 40 MG, UNK
     Dates: start: 20171012, end: 20171013
  5. SEROQUEL [Suspect]
     Active Substance: QUETIAPINE FUMARATE
     Dosage: 25 MG, UNK
     Dates: start: 20171011, end: 20171012
  6. SEROQUEL [Suspect]
     Active Substance: QUETIAPINE FUMARATE
     Dosage: 75 MG, 1X/DAY
  7. TEMESTA (LORAZEPAM) [Suspect]
     Active Substance: LORAZEPAM
     Dosage: 2 MG, UNK
     Route: 042
     Dates: start: 20171012, end: 20171012
  8. RISPERDAL [Suspect]
     Active Substance: RISPERIDONE
     Dosage: 0.5 MG, UNK
     Dates: start: 20171012, end: 20171013
  9. TRITTICO [Concomitant]
     Active Substance: TRAZODONE HYDROCHLORIDE
     Dosage: 50 MG, UNK, SINCE MONTHS
     Dates: start: 2017, end: 20171010
  10. NEBILAN [Suspect]
     Active Substance: NEBIVOLOL HYDROCHLORIDE
     Dosage: 5 MG, UNK, SINCE MONTHS
     Dates: start: 2017, end: 20171012
  11. CANDESARTAN/HCT [Suspect]
     Active Substance: CANDESARTAN CILEXETIL\HYDROCHLOROTHIAZIDE
     Dosage: 1 DF (16/12.5 MG), UNK
     Dates: start: 2017, end: 20171012

REACTIONS (6)
  - Hypotension [Recovered/Resolved]
  - Blood glucose increased [None]
  - Blood creatine phosphokinase increased [None]
  - Neutrophil percentage increased [None]
  - White blood cell count increased [None]
  - Blood creatinine increased [None]

NARRATIVE: CASE EVENT DATE: 20171013
